FAERS Safety Report 5977945-4 (Version None)
Quarter: 2008Q4

REPORT INFORMATION
  Report Type: 
  Country: None (occurrence: None)
  Receive Date: 20081203
  Receipt Date: 20081125
  Transmission Date: 20090506
  Serious: Yes (Hospitalization)
  Sender: FDA-Public Use
  Company Number: US-B.I. PHARMACEUTICALS,INC./RIDGEFIELD-2008-BP-17811BP

PATIENT
  Sex: Female

DRUGS (1)
  1. COMBIVENT [Suspect]
     Route: 055

REACTIONS (2)
  - DIVERTICULITIS [None]
  - DYSPNOEA [None]
